FAERS Safety Report 7860456-9 (Version None)
Quarter: 2011Q4

REPORT INFORMATION
  Report Type: 
  Country: None (occurrence: None)
  Receive Date: 20111027
  Receipt Date: 20111020
  Transmission Date: 20120403
  Serious: Yes (Other)
  Sender: FDA-Public Use
  Company Number: PHHY2011US61651

PATIENT
  Sex: Female

DRUGS (8)
  1. METAMUCIL-2 [Concomitant]
  2. OMEPRAZOLE [Concomitant]
  3. DOCUSATE SODIUM [Concomitant]
  4. COZAAR [Concomitant]
  5. ARIMIDEX [Concomitant]
  6. CIPROFLOXACIN [Concomitant]
  7. EXJADE [Suspect]
     Indication: MYELODYSPLASTIC SYNDROME
     Dosage: 2000 MG, DAILY
     Route: 048
     Dates: start: 20110623
  8. ASPIRIN [Concomitant]

REACTIONS (3)
  - URINARY TRACT INFECTION [None]
  - DIARRHOEA [None]
  - CONSTIPATION [None]
